FAERS Safety Report 25761327 (Version 1)
Quarter: 2025Q3

REPORT INFORMATION
  Report Type: Spontaneous
  Country: EU (occurrence: EU)
  Receive Date: 20250904
  Receipt Date: 20250904
  Transmission Date: 20251020
  Serious: Yes (Other)
  Sender: PFIZER
  Company Number: EU-009507513-2289278

PATIENT
  Age: 48 Year
  Sex: Female

DRUGS (8)
  1. BEVACIZUMAB [Suspect]
     Active Substance: BEVACIZUMAB
     Indication: Adenocarcinoma of appendix
  2. IRINOTECAN [Suspect]
     Active Substance: IRINOTECAN
     Indication: Adenocarcinoma of appendix
     Dates: start: 20230510, end: 20240119
  3. PEMBROLIZUMAB [Suspect]
     Active Substance: PEMBROLIZUMAB
     Indication: Adenocarcinoma of appendix
     Dates: start: 20240226
  4. FLUOROURACIL [Suspect]
     Active Substance: FLUOROURACIL
     Indication: Adenocarcinoma of appendix
     Dates: end: 202302
  5. FLUOROURACIL [Suspect]
     Active Substance: FLUOROURACIL
     Dates: start: 20230510, end: 20240119
  6. LEUCOVORIN CALCIUM [Suspect]
     Active Substance: LEUCOVORIN CALCIUM
     Indication: Adenocarcinoma of appendix
     Dates: end: 202302
  7. LEUCOVORIN CALCIUM [Suspect]
     Active Substance: LEUCOVORIN CALCIUM
     Dates: start: 20230510, end: 20240119
  8. OXALIPLATIN [Suspect]
     Active Substance: OXALIPLATIN
     Indication: Adenocarcinoma of appendix

REACTIONS (2)
  - Second primary malignancy [Unknown]
  - Lung adenocarcinoma [Unknown]

NARRATIVE: CASE EVENT DATE: 20241001
